FAERS Safety Report 8943245 (Version 1)
Quarter: 2012Q4

REPORT INFORMATION
  Report Type: 
  Country: US (occurrence: US)
  Receive Date: 20121204
  Receipt Date: 20121204
  Transmission Date: 20130627
  Serious: No
  Sender: FDA-Public Use
  Company Number: US-BAYER-2012-121932

PATIENT
  Age: 76 Year
  Sex: Female

DRUGS (1)
  1. MAGNEVIST [Suspect]
     Dosage: 15 ml, UNK
     Route: 042
     Dates: start: 20121120, end: 20121120

REACTIONS (2)
  - Rash pruritic [None]
  - Rash erythematous [None]
